FAERS Safety Report 4646366-9 (Version None)
Quarter: 2005Q2

REPORT INFORMATION
  Report Type: 
  Country: None (occurrence: None)
  Receive Date: 20050422
  Receipt Date: 20050422
  Transmission Date: 20051028
  Serious: Yes (Life-Threatening, Hospitalization)
  Sender: FDA-Public Use
  Company Number: None

PATIENT
  Age: 40 Year
  Sex: Male
  Weight: 92.5 kg

DRUGS (16)
  1. SIMVASTATIN [Suspect]
  2. PHOSPHORUS/POTASSIUM/SODIUM POWDER [Concomitant]
  3. PROCHLORPERAZINE [Concomitant]
  4. RANITIDINE [Concomitant]
  5. SIMVASTATIN [Concomitant]
  6. QUETIAPINE FUMARATE [Concomitant]
  7. LITHIUM [Concomitant]
  8. ENALAPRIL MALEATE [Concomitant]
  9. DOCUSATE [Concomitant]
  10. DIVALPROEX SODIUM [Concomitant]
  11. CITALOPRAM [Concomitant]
  12. ARIPIPRAZOLE [Concomitant]
  13. IBUPROFEN [Concomitant]
  14. HYDROXYZINE [Concomitant]
  15. ALOH/MGOH/SIMTH XTRA STRENGTH SUSP [Concomitant]
  16. ACETAMINOPHEN [Concomitant]

REACTIONS (1)
  - MYALGIA [None]
